FAERS Safety Report 6411082-X (Version None)
Quarter: 2009Q4

REPORT INFORMATION
  Report Type: 
  Country: None (occurrence: None)
  Receive Date: 20091022
  Receipt Date: 20091014
  Transmission Date: 20100525
  Serious: Yes (Hospitalization)
  Sender: FDA-Public Use
  Company Number: FR-GILEAD-2009-0024813

PATIENT
  Sex: Male

DRUGS (8)
  1. HEPSERA [Suspect]
     Indication: DRUG USE FOR UNKNOWN INDICATION
     Dates: start: 20011031, end: 20080718
  2. ZEFFIX [Concomitant]
     Dates: start: 19990812
  3. MONICOR [Concomitant]
     Dates: start: 19990524, end: 20070101
  4. VENTOLIN [Concomitant]
     Dates: start: 19991014, end: 20070101
  5. ZYRTEC [Concomitant]
     Dates: start: 19990628, end: 20080111
  6. OMEPRAZOLE [Concomitant]
     Dates: start: 19990812, end: 20080101
  7. NEXIUM [Concomitant]
     Dates: start: 20080101
  8. PREVISCAN [Concomitant]
     Dates: start: 20070821

REACTIONS (12)
  - FEMUR FRACTURE [None]
  - HYPERPHOSPHATURIA [None]
  - HYPERTHYROIDISM [None]
  - HYPOPHOSPHATAEMIA [None]
  - KIDNEY FIBROSIS [None]
  - NEPHROLITHIASIS [None]
  - OSTEOARTHRITIS [None]
  - OSTEOMALACIA [None]
  - PATHOLOGICAL FRACTURE [None]
  - PSEUDARTHROSIS [None]
  - RENAL TUBULAR ACIDOSIS [None]
  - SJOGREN'S SYNDROME [None]
